FAERS Safety Report 23514570 (Version 1)
Quarter: 2024Q1

REPORT INFORMATION
  Report Type: Spontaneous
  Country: HR (occurrence: HR)
  Receive Date: 20240212
  Receipt Date: 20240212
  Transmission Date: 20240410
  Serious: Yes (Other)
  Sender: FDA-Public Use
  Company Number: HR-ROCHE-3447233

PATIENT
  Age: 74 Year
  Sex: Female

DRUGS (10)
  1. CAPECITABINE [Suspect]
     Active Substance: CAPECITABINE
     Route: 048
  2. CYCLOPHOSPHAMIDE [Suspect]
     Active Substance: CYCLOPHOSPHAMIDE
     Indication: Diffuse large B-cell lymphoma
     Route: 065
  3. DOXORUBICIN [Suspect]
     Active Substance: DOXORUBICIN
     Indication: Diffuse large B-cell lymphoma
     Route: 065
  4. ETOPOSIDE [Suspect]
     Active Substance: ETOPOSIDE
     Indication: Product used for unknown indication
     Route: 065
  5. OBINUTUZUMAB [Suspect]
     Active Substance: OBINUTUZUMAB
     Indication: Product used for unknown indication
     Route: 042
  6. OXALIPLATIN [Suspect]
     Active Substance: OXALIPLATIN
     Indication: Product used for unknown indication
     Route: 065
  7. POLIVY [Suspect]
     Active Substance: POLATUZUMAB VEDOTIN-PIIQ
     Indication: Diffuse large B-cell lymphoma
     Route: 065
  8. PREDNISOLONE [Suspect]
     Active Substance: PREDNISOLONE
     Indication: Diffuse large B-cell lymphoma
     Route: 065
  9. RITUXIMAB [Suspect]
     Active Substance: RITUXIMAB
     Indication: Diffuse large B-cell lymphoma
     Route: 065
  10. VINCRISTINE [Suspect]
     Active Substance: VINCRISTINE
     Indication: Diffuse large B-cell lymphoma
     Route: 065

REACTIONS (16)
  - Neuropathy peripheral [Unknown]
  - Liver injury [Unknown]
  - Cataract [Unknown]
  - Diarrhoea [Unknown]
  - Weight decreased [Unknown]
  - Nausea [Unknown]
  - Muscle spasms [Unknown]
  - Paraesthesia [Unknown]
  - Abdominal pain [Unknown]
  - Infusion related reaction [Unknown]
  - Retroperitoneal lymphadenopathy [Unknown]
  - Mass [Unknown]
  - Urinary tract infection [Unknown]
  - Aphthous ulcer [Unknown]
  - Constipation [Unknown]
  - Lymphadenopathy [Unknown]
